FAERS Safety Report 7307882-4 (Version None)
Quarter: 2011Q1

REPORT INFORMATION
  Report Type: 
  Country: None (occurrence: None)
  Receive Date: 20110223
  Receipt Date: 20110211
  Transmission Date: 20110831
  Serious: Yes (Hospitalization)
  Sender: FDA-Public Use
  Company Number: US-ELI_LILLY_AND_COMPANY-US201102004010

PATIENT
  Sex: Female

DRUGS (2)
  1. GLUCOPHAGE [Concomitant]
  2. BYETTA [Suspect]
     Dosage: 10 UG, 2/D
     Route: 064

REACTIONS (2)
  - JAUNDICE NEONATAL [None]
  - DRUG EXPOSURE DURING PREGNANCY [None]
